FAERS Safety Report 16628399 (Version 1)
Quarter: 2019Q3

REPORT INFORMATION
  Report Type: Spontaneous
  Country: TW (occurrence: TW)
  Receive Date: 20190724
  Receipt Date: 20190724
  Transmission Date: 20191004
  Serious: Yes (Other)
  Sender: FDA-Public Use
  Company Number: TW-AMGEN-TWNSP2019118551

PATIENT
  Age: 66 Year
  Sex: Female

DRUGS (6)
  1. FOLIC ACID. [Concomitant]
     Active Substance: FOLIC ACID
     Dosage: 1 DOSAGE FORM, QD
  2. ENBREL [Suspect]
     Active Substance: ETANERCEPT
     Indication: RHEUMATOID ARTHRITIS
     Dosage: 25 MILLIGRAM, BIW
     Route: 058
     Dates: start: 20090105, end: 20190712
  3. PREDNISOLONE. [Concomitant]
     Active Substance: PREDNISOLONE
     Dosage: 1 DOSAGE FORM, QD
  4. CELECOXIB. [Concomitant]
     Active Substance: CELECOXIB
     Dosage: 1 DOSAGE FORM, BID
  5. SUWELL [Concomitant]
     Dosage: 1 DOSAGE FORM, TID
  6. SULFASALAZINE. [Concomitant]
     Active Substance: SULFASALAZINE
     Dosage: 1 DOSAGE FORM, QID

REACTIONS (1)
  - Colon cancer stage III [Not Recovered/Not Resolved]
